FAERS Safety Report 16839259 (Version 1)
Quarter: 2019Q3

REPORT INFORMATION
  Report Type: Spontaneous
  Country: US (occurrence: US)
  Receive Date: 20190923
  Receipt Date: 20190923
  Transmission Date: 20191005
  Serious: Yes (Hospitalization)
  Sender: FDA-Public Use
  Company Number: US-ELI_LILLY_AND_COMPANY-US201909008838

PATIENT
  Sex: Male

DRUGS (4)
  1. LETROZOLE. [Concomitant]
     Active Substance: LETROZOLE
     Indication: BREAST CANCER STAGE IV
  2. GOSERELIN [Concomitant]
     Active Substance: GOSERELIN
     Indication: BREAST CANCER STAGE IV
  3. VERZENIO [Suspect]
     Active Substance: ABEMACICLIB
     Indication: NEOPLASM MALIGNANT
     Dosage: 150 MG, BID
     Route: 048
     Dates: start: 20190228, end: 20190417
  4. CLINDAMYCIN. [Suspect]
     Active Substance: CLINDAMYCIN
     Indication: OSTEONECROSIS OF JAW
     Dosage: 150 MG, TID
     Route: 065
     Dates: start: 20190411, end: 20190417

REACTIONS (6)
  - Oral infection [Unknown]
  - Neutropenic sepsis [Unknown]
  - Cardiac disorder [Unknown]
  - Clostridium difficile colitis [Unknown]
  - Osteonecrosis of jaw [Unknown]
  - Febrile neutropenia [Unknown]

NARRATIVE: CASE EVENT DATE: 201902
